FAERS Safety Report 19195308 (Version 1)
Quarter: 2021Q2

REPORT INFORMATION
  Report Type: Spontaneous
  Country: PT (occurrence: PT)
  Receive Date: 20210429
  Receipt Date: 20210429
  Transmission Date: 20210717
  Serious: Yes (Hospitalization, Other)
  Sender: FDA-Public Use
  Company Number: PT-HIKMA PHARMACEUTICALS USA INC.-PT-H14001-21-54198

PATIENT
  Age: 71 Year
  Sex: Female

DRUGS (1)
  1. AMIODARONE [Suspect]
     Active Substance: AMIODARONE
     Indication: PRODUCT USED FOR UNKNOWN INDICATION
     Route: 065

REACTIONS (6)
  - Bronchiectasis [Recovered/Resolved]
  - Pleural thickening [Recovered/Resolved]
  - Pulmonary fibrosis [Recovered/Resolved]
  - Interstitial lung disease [Recovered/Resolved]
  - Pulmonary toxicity [Recovered/Resolved]
  - Toxicity to various agents [Recovered/Resolved]
